FAERS Safety Report 19960222 (Version 1)
Quarter: 2021Q4

REPORT INFORMATION
  Report Type: Spontaneous
  Country: CN (occurrence: CN)
  Receive Date: 20211015
  Receipt Date: 20211015
  Transmission Date: 20220304
  Serious: Yes (Hospitalization)
  Sender: FDA-Public Use
  Company Number: CN-BAXTER-2021BAX026808

PATIENT
  Age: 52 Year
  Sex: Female
  Weight: 52 kg

DRUGS (11)
  1. CYCLOPHOSPHAMIDE [Suspect]
     Active Substance: CYCLOPHOSPHAMIDE
     Indication: Non-Hodgkin^s lymphoma
     Route: 041
     Dates: start: 20190814, end: 20190814
  2. CYCLOPHOSPHAMIDE [Suspect]
     Active Substance: CYCLOPHOSPHAMIDE
     Dosage: DOSE REINTRODUCED
     Route: 041
  3. SODIUM CHLORIDE [Suspect]
     Active Substance: SODIUM CHLORIDE
     Indication: Non-Hodgkin^s lymphoma
     Dosage: CYCLOPHOSPHAMIDE FOR INJECTION 1G + 0.9% SODIUM CHLORIDE INJECTION 500ML
     Route: 041
     Dates: start: 20190814, end: 20190814
  4. SODIUM CHLORIDE [Suspect]
     Active Substance: SODIUM CHLORIDE
     Dosage: VINORELBINE TARTRATE INJECTION 30MG + 0.9% SODIUM CHLORIDE INJECTION 125ML
     Route: 041
     Dates: start: 20190814, end: 20190814
  5. SODIUM CHLORIDE [Suspect]
     Active Substance: SODIUM CHLORIDE
     Dosage: RITUXIMAB INJECTION 500MG + 0.9% SODIUM CHLORIDE INJECTION 500ML
     Route: 041
     Dates: start: 20190813, end: 20190813
  6. VINORELBINE TARTRATE [Suspect]
     Active Substance: VINORELBINE TARTRATE
     Indication: Non-Hodgkin^s lymphoma
     Route: 041
     Dates: start: 20190814, end: 20190814
  7. VINORELBINE TARTRATE [Suspect]
     Active Substance: VINORELBINE TARTRATE
     Dosage: DOSE REINTRODUCED
     Route: 041
  8. PREDNISONE ACETATE [Suspect]
     Active Substance: PREDNISONE ACETATE
     Indication: Non-Hodgkin^s lymphoma
     Route: 048
     Dates: start: 20190815, end: 20190821
  9. PREDNISONE ACETATE [Suspect]
     Active Substance: PREDNISONE ACETATE
     Dosage: DOSE REINTRODUCED
     Route: 048
  10. RITUXIMAB [Suspect]
     Active Substance: RITUXIMAB
     Indication: Non-Hodgkin^s lymphoma
     Route: 041
     Dates: start: 20190813, end: 20190813
  11. RITUXIMAB [Suspect]
     Active Substance: RITUXIMAB
     Dosage: DOSE RENINTRODUCED
     Route: 041

REACTIONS (1)
  - Granulocytopenia [Recovering/Resolving]

NARRATIVE: CASE EVENT DATE: 20190901
